FAERS Safety Report 9527605 (Version 1)
Quarter: 2013Q1

REPORT INFORMATION
  Report Type: Spontaneous
  Country: US (occurrence: None)
  Receive Date: 20130314
  Receipt Date: 20130314
  Transmission Date: 20140127
  Serious: Yes (Other)
  Sender: FDA-Public Use
  Company Number: 1212USA002829

PATIENT
  Age: 56 Year
  Sex: Female

DRUGS (3)
  1. VICTRELIS (BOCEPREVIR) CAPSULE, 200MG [Suspect]
     Indication: HEPATITIS C
     Route: 048
     Dates: start: 20120801
  2. RIBASPHERE [Concomitant]
  3. PEGASYS [Concomitant]

REACTIONS (6)
  - Muscle spasms [None]
  - Depression [None]
  - Haemoglobin decreased [None]
  - Faeces discoloured [None]
  - Constipation [None]
  - Crying [None]
